FAERS Safety Report 16567959 (Version 8)
Quarter: 2020Q3

REPORT INFORMATION
  Report Type: Report from Study
  Country: US (occurrence: US)
  Receive Date: 20190712
  Receipt Date: 20200814
  Transmission Date: 20201102
  Serious: Yes (Hospitalization, Other)
  Sender: FDA-Public Use
  Company Number: US-ACTELION-A-US2019-193023

PATIENT
  Age: 68 Year
  Sex: Male

DRUGS (21)
  1. EPLERENONE. [Concomitant]
     Active Substance: EPLERENONE
  2. APIXABAN [Concomitant]
     Active Substance: APIXABAN
  3. TRAZODONE [Concomitant]
     Active Substance: TRAZODONE HYDROCHLORIDE
  4. NORCO [Concomitant]
     Active Substance: ACETAMINOPHEN\HYDROCODONE BITARTRATE
  5. OPSUMIT [Suspect]
     Active Substance: MACITENTAN
     Dosage: 10 MG, QD
     Route: 048
     Dates: start: 20160812
  6. PANTOPRAZOLE [Concomitant]
     Active Substance: PANTOPRAZOLE
  7. ATORVASTATIN [Concomitant]
     Active Substance: ATORVASTATIN
  8. GABAPENTIN. [Concomitant]
     Active Substance: GABAPENTIN
  9. OPSUMIT [Suspect]
     Active Substance: MACITENTAN
     Indication: PULMONARY ARTERIAL HYPERTENSION
     Dosage: 10 MG
     Route: 048
     Dates: start: 201606
  10. SILDENAFIL. [Concomitant]
     Active Substance: SILDENAFIL
  11. ALBUTEROL HFA [Concomitant]
     Active Substance: ALBUTEROL SULFATE
  12. TORSEMIDE. [Concomitant]
     Active Substance: TORSEMIDE
  13. VENTOLIN HFA [Concomitant]
     Active Substance: ALBUTEROL SULFATE
  14. TYVASO [Concomitant]
     Active Substance: TREPROSTINIL
  15. AMIODARONE [Concomitant]
     Active Substance: AMIODARONE
  16. FAMOTIDINE. [Concomitant]
     Active Substance: FAMOTIDINE
  17. ALLOPURINOL. [Concomitant]
     Active Substance: ALLOPURINOL
  18. ASPIRIN. [Concomitant]
     Active Substance: ASPIRIN
  19. ANUCORT?HC [Concomitant]
     Active Substance: HYDROCORTISONE ACETATE
  20. NARCAN [Concomitant]
     Active Substance: NALOXONE HYDROCHLORIDE
  21. HYDROCORTISONE. [Concomitant]
     Active Substance: HYDROCORTISONE
     Route: 061

REACTIONS (35)
  - Dizziness [Unknown]
  - Haemoglobin decreased [Unknown]
  - Myocardial ischaemia [Unknown]
  - Productive cough [Unknown]
  - Oropharyngeal pain [Unknown]
  - Pneumonia [Unknown]
  - Dyspnoea [Unknown]
  - Right ventricular failure [Unknown]
  - Haemorrhoids [Unknown]
  - Cardiac failure [Unknown]
  - Troponin increased [Unknown]
  - Abdominal pain [Unknown]
  - Gastroenteritis [Unknown]
  - Arthropod bite [Unknown]
  - Abscess [Unknown]
  - Erythema [Unknown]
  - Pulmonary hypertension [Unknown]
  - Acute respiratory failure [Recovering/Resolving]
  - Upper respiratory tract infection [Unknown]
  - Acute kidney injury [Recovering/Resolving]
  - Chest pain [Unknown]
  - Corneal abrasion [Unknown]
  - Oedema peripheral [Unknown]
  - Pyrexia [Unknown]
  - Fluid overload [Recovering/Resolving]
  - Eye pain [Unknown]
  - Ocular hyperaemia [Unknown]
  - Swelling [Unknown]
  - Pain in extremity [Recovering/Resolving]
  - Nasal congestion [Unknown]
  - Pain [Unknown]
  - Brain natriuretic peptide increased [Unknown]
  - Faeces discoloured [Unknown]
  - Diarrhoea [Unknown]
  - Chest discomfort [Unknown]

NARRATIVE: CASE EVENT DATE: 20190531
